FAERS Safety Report 8673174 (Version 2)
Quarter: 2012Q4

REPORT INFORMATION
  Report Type: 
  Country: US (occurrence: US)
  Receive Date: 20120717
  Receipt Date: 20121023
  Transmission Date: 20130627
  Serious: Yes (Death)
  Sender: FDA-Public Use
  Company Number: US-ASTELLAS-2012US006168

PATIENT
  Age: 63 Year
  Sex: Female

DRUGS (2)
  1. PROGRAF [Suspect]
     Indication: RENAL TRANSPLANT
     Dosage: 3 mg, bid
     Route: 048
     Dates: start: 20110303, end: 20110401
  2. PROGRAF [Suspect]
     Dosage: 1 mg, bid
     Route: 048
     Dates: start: 20120612, end: 20120626

REACTIONS (1)
  - Death [Fatal]
